FAERS Safety Report 16081918 (Version 4)
Quarter: 2019Q2

REPORT INFORMATION
  Report Type: Report from Study
  Country: ES (occurrence: ES)
  Receive Date: 20190317
  Receipt Date: 20190521
  Transmission Date: 20190711
  Serious: Yes (Hospitalization)
  Sender: FDA-Public Use
  Company Number: ES-ROCHE-2270161

PATIENT
  Age: 65 Year
  Sex: Male
  Weight: 96.3 kg

DRUGS (25)
  1. MELATONIN [Concomitant]
     Active Substance: MELATONIN
     Route: 065
     Dates: start: 20190116
  2. CHOLESTYRAMINE. [Concomitant]
     Active Substance: CHOLESTYRAMINE
     Route: 065
     Dates: start: 20190104
  3. NOLOTIL [METAMIZOLE MAGNESIUM] [Concomitant]
     Active Substance: METAMIZOLE MAGNESIUM
     Route: 065
     Dates: start: 20190104
  4. AZTREONAM. [Concomitant]
     Active Substance: AZTREONAM
     Route: 065
     Dates: start: 20181211, end: 20181211
  5. TARDYFERON [Concomitant]
     Active Substance: FERROUS SULFATE
     Route: 065
     Dates: start: 20190104
  6. CARDURAN [Concomitant]
     Active Substance: DOXAZOSIN MESYLATE
     Route: 065
     Dates: start: 2015, end: 20181203
  7. ENANTYUM [Concomitant]
     Active Substance: DEXKETOPROFEN TROMETAMOL
     Route: 065
     Dates: start: 201807, end: 20181211
  8. TALIMOGENE LAHERPAREPVEC [Suspect]
     Active Substance: TALIMOGENE LAHERPAREPVEC
     Indication: COLORECTAL CANCER
     Dosage: ON 18/JAN/2019, HE RECEIVED THE MOST RECENT DOSE OF TALIMOGENE LAHERPAREPVEC.
     Route: 026
     Dates: start: 20181011
  9. PARACETAMOL [Concomitant]
     Active Substance: ACETAMINOPHEN
     Route: 065
     Dates: start: 20181122
  10. AUGMENTINE [AMOXICILLIN;CLAVULANIC ACID] [Concomitant]
     Active Substance: AMOXICILLIN\CLAVULANIC ACID
     Route: 065
     Dates: start: 20181206, end: 20181206
  11. POLARAMINE [Concomitant]
     Active Substance: DEXCHLORPHENIRAMINE MALEATE
     Route: 065
     Dates: start: 20181206, end: 20181206
  12. SEVREDOL [Concomitant]
     Active Substance: MORPHINE
     Route: 065
     Dates: start: 20180911, end: 20181211
  13. LEVOFLOXACINO [LEVOFLOXACIN] [Concomitant]
     Route: 065
     Dates: start: 20190208, end: 20190213
  14. CIPROFLOXACIN. [Concomitant]
     Active Substance: CIPROFLOXACIN
     Route: 065
     Dates: start: 20181206, end: 20181213
  15. ZOLPIDEM [Concomitant]
     Active Substance: ZOLPIDEM\ZOLPIDEM TARTRATE
     Route: 065
     Dates: start: 20181215
  16. ATEZOLIZUMAB. [Suspect]
     Active Substance: ATEZOLIZUMAB
     Indication: COLORECTAL CANCER
     Dosage: ON 18/JAN/2019, HE RECEIVED THE MOST RECENT DOSE OF ATEZOLIZUMAB.
     Route: 041
     Dates: start: 20181011
  17. KILOR [Concomitant]
     Route: 065
     Dates: start: 201804, end: 20181211
  18. HIDROFEROL [Concomitant]
     Active Substance: CALCIFEDIOL
     Route: 065
     Dates: start: 201804
  19. URBASON [METHYLPREDNISOLONE] [Concomitant]
     Active Substance: METHYLPREDNISOLONE
     Route: 065
     Dates: start: 20181206, end: 20181206
  20. OMEPRAZOLE. [Concomitant]
     Active Substance: OMEPRAZOLE
     Route: 065
     Dates: start: 201804
  21. MST CONTINUS [Concomitant]
     Active Substance: MORPHINE SULFATE
     Route: 065
     Dates: start: 20180911, end: 20181211
  22. FUROSEMIDE. [Concomitant]
     Active Substance: FUROSEMIDE
     Route: 065
     Dates: start: 20181212
  23. PLANTAGO OVATA [Concomitant]
     Active Substance: HERBALS\PLANTAGO OVATA LEAF
     Route: 065
     Dates: start: 20180823, end: 20181211
  24. CLEXANE [Concomitant]
     Active Substance: ENOXAPARIN SODIUM
     Indication: PULMONARY EMBOLISM
     Route: 065
     Dates: start: 20181002
  25. OMNIC OCAS [Concomitant]
     Active Substance: TAMSULOSIN HYDROCHLORIDE
     Route: 065
     Dates: start: 20190104

REACTIONS (2)
  - Myocarditis [Recovered/Resolved]
  - Cardiac failure [Recovered/Resolved]

NARRATIVE: CASE EVENT DATE: 20190213
